FAERS Safety Report 4314702-9 (Version None)
Quarter: 2004Q1

REPORT INFORMATION
  Report Type: 
  Country: None (occurrence: None)
  Receive Date: 20040310
  Receipt Date: 20040209
  Transmission Date: 20041129
  Serious: Yes (Other)
  Sender: FDA-Public Use
  Company Number: PHHO2004RO02075

PATIENT
  Age: 76 Year
  Sex: Female

DRUGS (4)
  1. EXELON [Suspect]
     Indication: DEMENTIA
     Dosage: 1.5 MG, BID
     Route: 048
     Dates: start: 20031027, end: 20031120
  2. CAVINTON [Concomitant]
     Dates: start: 20031220, end: 20040227
  3. NITRAZEPAM [Concomitant]
  4. PIRACETAM [Concomitant]

REACTIONS (4)
  - AGITATION [None]
  - DISORIENTATION [None]
  - FAECAL INCONTINENCE [None]
  - MENTAL IMPAIRMENT [None]
